FAERS Safety Report 19617846 (Version 2)
Quarter: 2021Q4

REPORT INFORMATION
  Report Type: Spontaneous
  Country: US (occurrence: US)
  Receive Date: 20210727
  Receipt Date: 20211119
  Transmission Date: 20220303
  Serious: No
  Sender: FDA-Public Use
  Company Number: US-INSUD PHARMA-2107US00798

PATIENT

DRUGS (1)
  1. CLOBETASOL [Suspect]
     Active Substance: CLOBETASOL
     Indication: Eczema
     Dosage: DAILY
     Route: 061
     Dates: start: 20210611, end: 20210625

REACTIONS (3)
  - Application site pain [Unknown]
  - Product substitution issue [Unknown]
  - Product physical consistency issue [Unknown]

NARRATIVE: CASE EVENT DATE: 20210611
